FAERS Safety Report 6882785-8 (Version None)
Quarter: 2010Q3

REPORT INFORMATION
  Report Type: 
  Country: None (occurrence: None)
  Receive Date: 20100729
  Receipt Date: 20100729
  Transmission Date: 20110219
  Serious: Yes (Death)
  Sender: FDA-Public Use
  Company Number: US-ROXANE LABORATORIES, INC.-2010-RO-00858RO

PATIENT
  Age: 20 Year
  Sex: Male
  Weight: 75 kg

DRUGS (7)
  1. METHADONE HCL [Suspect]
  2. CHANTIX [Suspect]
     Indication: EX-TOBACCO USER
     Dosage: 0.5 MG
     Route: 048
     Dates: start: 20080101
  3. CHANTIX [Suspect]
     Dosage: 1 MG
     Route: 048
  4. NICOTINE [Suspect]
  5. CAFFEINE [Suspect]
  6. COFFEE [Suspect]
  7. SEROQUEL [Suspect]
     Indication: SLEEP DISORDER

REACTIONS (8)
  - ABNORMAL DREAMS [None]
  - DIZZINESS [None]
  - DRUG INTERACTION [None]
  - FATIGUE [None]
  - NIGHTMARE [None]
  - OVERDOSE [None]
  - PRURITUS [None]
  - SLEEP DISORDER [None]
